FAERS Safety Report 4408536-4 (Version None)
Quarter: 2004Q3

REPORT INFORMATION
  Report Type: 
  Country: None (occurrence: None)
  Receive Date: 20040722
  Receipt Date: 20040709
  Transmission Date: 20050211
  Serious: Yes (Death)
  Sender: FDA-Public Use
  Company Number: US-JNJFOC-20040702863

PATIENT
  Age: 46 Year
  Sex: Female
  Weight: 84.8226 kg

DRUGS (16)
  1. INFLIXIMAB (INFLIXIMAB, RECOMBINANT) LYOPHILIZED POWDER [Suspect]
     Indication: RHEUMATOID ARTHRITIS
     Dosage: INTRAVENOUS
     Route: 042
     Dates: start: 20000502
  2. GLUCOTROL XL [Concomitant]
  3. NEXIUM [Concomitant]
  4. TIZANIDINE (TIZANIDINE) [Concomitant]
  5. COUMADIN [Concomitant]
  6. PREDNISONE [Concomitant]
  7. TRAZADONE (TRAZODONE) [Concomitant]
  8. ENDOCET (OXYCOCET) [Concomitant]
  9. XANAX [Concomitant]
  10. REMERON [Concomitant]
  11. ALLEGRA [Concomitant]
  12. METHOTREXATE [Concomitant]
  13. FOSAMAX [Concomitant]
  14. FOLIC ACID [Concomitant]
  15. DURAGESIC [Concomitant]
  16. LEXAPRO [Concomitant]

REACTIONS (1)
  - DEATH [None]
